FAERS Safety Report 24137405 (Version 1)
Quarter: 2024Q3

REPORT INFORMATION
  Report Type: Spontaneous
  Country: HR (occurrence: HR)
  Receive Date: 20240725
  Receipt Date: 20240725
  Transmission Date: 20241017
  Serious: Yes (Other)
  Sender: PFIZER
  Company Number: None

PATIENT
  Age: 14 Year
  Sex: Female
  Weight: 43 kg

DRUGS (5)
  1. CONTROLOC [Suspect]
     Active Substance: PANTOPRAZOLE SODIUM
     Dosage: 400 MILLIGRAM, QD
     Route: 048
     Dates: start: 20240602, end: 20240602
  2. BUTAMIRATE CITRATE [Suspect]
     Active Substance: BUTAMIRATE CITRATE
     Dosage: 500 MILLIGRAM, QD
     Route: 048
     Dates: start: 20240602, end: 20240602
  3. ACETAMINOPHEN\ASCORBIC ACID\CAFFEINE\PHENYLEPHRINE HYDROCHLORIDE\TERPI [Suspect]
     Active Substance: ACETAMINOPHEN\ASCORBIC ACID\CAFFEINE\PHENYLEPHRINE HYDROCHLORIDE\TERPIN HYDRATE
     Dosage: 16 DOSAGE FORM, QD
     Route: 048
     Dates: start: 20240602, end: 20240602
  4. ACETAMINOPHEN [Suspect]
     Active Substance: ACETAMINOPHEN
     Dosage: 5000 MILLIGRAM, QD
     Route: 048
     Dates: start: 20240602, end: 20240602
  5. NORMABEL [Suspect]
     Active Substance: DIAZEPAM
     Dosage: 150 MILLIGRAM, QD
     Route: 048
     Dates: start: 20240602, end: 20240602

REACTIONS (4)
  - Intentional overdose [Unknown]
  - Vomiting [Unknown]
  - Loss of consciousness [Unknown]
  - Suicide attempt [Unknown]

NARRATIVE: CASE EVENT DATE: 20240602
